FAERS Safety Report 25704131 (Version 1)
Quarter: 2025Q3

REPORT INFORMATION
  Report Type: Report from Study
  Country: US (occurrence: US)
  Receive Date: 20250820
  Receipt Date: 20250820
  Transmission Date: 20251021
  Serious: No
  Sender: BIOVITRUM
  Company Number: US-BIOVITRUM-2025-US-011251

PATIENT
  Age: 86 Year
  Sex: Male

DRUGS (2)
  1. DOPTELET [Suspect]
     Active Substance: AVATROMBOPAG MALEATE
     Indication: Immune thrombocytopenia
     Route: 048
     Dates: start: 20230429
  2. NUBEQA [Concomitant]
     Active Substance: DAROLUTAMIDE
     Indication: Product used for unknown indication

REACTIONS (5)
  - Swollen tongue [Unknown]
  - Eating disorder [Unknown]
  - Speech disorder [Unknown]
  - Tongue biting [Unknown]
  - Condition aggravated [Unknown]
